FAERS Safety Report 6079741-9 (Version None)
Quarter: 2009Q1

REPORT INFORMATION
  Report Type: 
  Country: None (occurrence: None)
  Receive Date: 20090211
  Receipt Date: 20090206
  Transmission Date: 20090719
  Serious: Yes (Hospitalization, Other)
  Sender: FDA-Public Use
  Company Number: GXKR2009DE01609

PATIENT
  Age: 22 Year
  Sex: Female

DRUGS (7)
  1. GABAPENTIN [Suspect]
     Indication: COMPLEX REGIONAL PAIN SYNDROME
     Dates: start: 20080201, end: 20090123
  2. TILIDIN HEXAL COMP (NGX) (NALOXONE, TILIDINE) EXTENDED RELEASE TABLET [Suspect]
     Indication: COMPLEX REGIONAL PAIN SYNDROME
     Dates: start: 20081201, end: 20081201
  3. IBUHEXAL (NGX) (IBUPROFEN) FILM-COATED TABLET, 800MG [Suspect]
     Indication: COMPLEX REGIONAL PAIN SYNDROME
     Dates: start: 20080801, end: 20090101
  4. ACETAMINOPHEN [Suspect]
     Indication: COMPLEX REGIONAL PAIN SYNDROME
     Dates: start: 20081101, end: 20090101
  5. LYRICA [Suspect]
     Indication: COMPLEX REGIONAL PAIN SYNDROME
     Dates: start: 20080401, end: 20090101
  6. DICLOFENAC SODIUM [Suspect]
     Indication: COMPLEX REGIONAL PAIN SYNDROME
     Dates: start: 20081201
  7. HOMEOPATHIC PREPARATIONS (NO INGREDIENTS/SUBSTANCES) [Concomitant]

REACTIONS (17)
  - AMNESIA [None]
  - APATHY [None]
  - CONVULSION [None]
  - DRUG INTERACTION [None]
  - HAEMOPTYSIS [None]
  - LOSS OF CONSCIOUSNESS [None]
  - MUSCLE SPASTICITY [None]
  - PAINFUL RESPIRATION [None]
  - PARAESTHESIA [None]
  - PARALYSIS [None]
  - RESPIRATORY DISORDER [None]
  - SPEECH DISORDER [None]
  - TONGUE BITING [None]
  - TRANCE [None]
  - TREMOR [None]
  - UNRESPONSIVE TO STIMULI [None]
  - VISUAL IMPAIRMENT [None]
